FAERS Safety Report 18493312 (Version 5)
Quarter: 2021Q1

REPORT INFORMATION
  Report Type: Report from Study
  Country: CL (occurrence: CL)
  Receive Date: 20201111
  Receipt Date: 20210330
  Transmission Date: 20210419
  Serious: Yes (Other)
  Sender: FDA-Public Use
  Company Number: CL-TAKEDA-CL202029400

PATIENT
  Age: 15 Year
  Sex: Male
  Weight: 46 kg

DRUGS (3)
  1. IDURSULFASE [Suspect]
     Active Substance: IDURSULFASE
     Dosage: UNK UNK, 1/WEEK
     Route: 042
  2. IDURSULFASE [Suspect]
     Active Substance: IDURSULFASE
     Dosage: UNK
     Route: 065
  3. IDURSULFASE [Suspect]
     Active Substance: IDURSULFASE
     Indication: PRODUCT USED FOR UNKNOWN INDICATION
     Dosage: 2 MILLIGRAM PER MILLILITRE, 1/WEEK
     Route: 042

REACTIONS (5)
  - Generalised tonic-clonic seizure [Recovered/Resolved]
  - Sleep disorder [Unknown]
  - Pyrexia [Recovered/Resolved]
  - Seizure [Unknown]
  - Mass [Recovered/Resolved]

NARRATIVE: CASE EVENT DATE: 20201020
